FAERS Safety Report 8378908-4 (Version None)
Quarter: 2012Q2

REPORT INFORMATION
  Report Type: 
  Country: None (occurrence: None)
  Receive Date: 20120523
  Receipt Date: 20120518
  Transmission Date: 20120825
  Serious: No
  Sender: FDA-Public Use
  Company Number: US-PFIZER INC-2012077147

PATIENT
  Sex: Female

DRUGS (3)
  1. AVASTIN [Suspect]
     Dosage: UNK
  2. CARBOPLATIN [Suspect]
     Dosage: UNK
  3. TAXOL [Suspect]
     Dosage: UNK

REACTIONS (3)
  - HYPERSENSITIVITY [None]
  - SNEEZING [None]
  - PRURITUS [None]
